FAERS Safety Report 7835553-4 (Version None)
Quarter: 2011Q4

REPORT INFORMATION
  Report Type: 
  Country: None (occurrence: None)
  Receive Date: 20111024
  Receipt Date: 20111017
  Transmission Date: 20120403
  Serious: Yes (Hospitalization, Other)
  Sender: FDA-Public Use
  Company Number: PHEH2009US07540

PATIENT
  Sex: Female

DRUGS (17)
  1. HYDROCODONE BITARTRATE [Concomitant]
  2. AMIODARONE HCL [Concomitant]
     Dosage: 200 MG, DAILY
  3. METHADONE HCL [Concomitant]
     Dosage: 30 MG, TID
  4. LORTAB [Concomitant]
     Dosage: UNK
  5. LEVAQUIN [Concomitant]
  6. EFFEXOR [Concomitant]
     Dosage: 75 MG, DAILY
  7. ATIVAN [Concomitant]
     Dosage: 2 MG, AT BED TIME
  8. XANAX [Concomitant]
     Dosage: 0.25 MG, BID
  9. ASPIRIN [Concomitant]
  10. SENNA [Concomitant]
  11. CODEINE SULFATE [Concomitant]
  12. AREDIA [Suspect]
  13. BUSPAR [Concomitant]
  14. PACERONE [Concomitant]
  15. CHEMOTHERAPEUTICS [Concomitant]
  16. ZOMETA [Suspect]
  17. ATENOLOL [Concomitant]
     Dosage: 25 MG, QHS

REACTIONS (42)
  - DEPRESSION [None]
  - WEIGHT INCREASED [None]
  - METASTASES TO BONE [None]
  - VENTRICULAR TACHYCARDIA [None]
  - HILAR LYMPHADENOPATHY [None]
  - TRICUSPID VALVE INCOMPETENCE [None]
  - PULMONARY VALVE INCOMPETENCE [None]
  - METASTASES TO SPINE [None]
  - MOUTH ULCERATION [None]
  - PRESYNCOPE [None]
  - PAIN [None]
  - ALTERED STATE OF CONSCIOUSNESS [None]
  - METASTASES TO LUNG [None]
  - MITRAL VALVE PROLAPSE [None]
  - MITRAL VALVE INCOMPETENCE [None]
  - BACK PAIN [None]
  - OSTEONECROSIS OF JAW [None]
  - HYPOTHYROIDISM [None]
  - BREAST CANCER METASTATIC [None]
  - ATELECTASIS [None]
  - OEDEMA PERIPHERAL [None]
  - RESPIRATORY DISTRESS [None]
  - METASTASES TO LIVER [None]
  - THROMBOCYTOPENIA [None]
  - ANXIETY [None]
  - PHLEBITIS [None]
  - MENTAL STATUS CHANGES [None]
  - GENERAL PHYSICAL HEALTH DETERIORATION [None]
  - BASEDOW'S DISEASE [None]
  - SCAR [None]
  - LUNG NEOPLASM [None]
  - DYSPNOEA EXERTIONAL [None]
  - ABDOMINAL PAIN [None]
  - ANHEDONIA [None]
  - PARALYSIS [None]
  - PALPITATIONS [None]
  - HYPOKALAEMIA [None]
  - IMPAIRED GASTRIC EMPTYING [None]
  - HYPERTENSION [None]
  - AORTIC VALVE INCOMPETENCE [None]
  - CELLULITIS [None]
  - ATRIAL FIBRILLATION [None]
